FAERS Safety Report 6427031-4 (Version None)
Quarter: 2009Q4

REPORT INFORMATION
  Report Type: 
  Country: None (occurrence: None)
  Receive Date: 20091104
  Receipt Date: 20091030
  Transmission Date: 20100525
  Serious: Yes (Other)
  Sender: FDA-Public Use
  Company Number: US-MERCK-0801USA05467

PATIENT
  Age: 64 Year
  Sex: Female
  Weight: 57 kg

DRUGS (3)
  1. FOSAMAX [Suspect]
     Indication: OSTEOPOROSIS
     Route: 048
     Dates: start: 20000101, end: 20060101
  2. HORMONES (UNSPECIFIED) [Concomitant]
     Route: 065
     Dates: start: 19940101
  3. [THERAPY UNSPECIFIED] [Concomitant]
     Indication: HYPERTENSION
     Route: 065
     Dates: start: 19940101

REACTIONS (35)
  - ARTHROPATHY [None]
  - BACK PAIN [None]
  - BLOOD MAGNESIUM DECREASED [None]
  - BURSITIS [None]
  - CELLULITIS [None]
  - CHEST PAIN [None]
  - CHRONIC OBSTRUCTIVE PULMONARY DISEASE [None]
  - CORNEAL THINNING [None]
  - COUGH [None]
  - DIZZINESS [None]
  - DYSPNOEA [None]
  - FLANK PAIN [None]
  - GAZE PALSY [None]
  - GINGIVITIS [None]
  - HEADACHE [None]
  - INFECTION [None]
  - IODINE ALLERGY [None]
  - JOINT EFFUSION [None]
  - MIGRAINE [None]
  - MUSCULOSKELETAL PAIN [None]
  - NERVE INJURY [None]
  - ORTHOPNOEA [None]
  - OSTEOARTHRITIS [None]
  - OSTEOMYELITIS [None]
  - OSTEONECROSIS [None]
  - OSTEOPENIA [None]
  - PALPITATIONS [None]
  - PARAESTHESIA [None]
  - PYREXIA [None]
  - SPINAL OSTEOARTHRITIS [None]
  - STOMATITIS [None]
  - TRANSIENT ISCHAEMIC ATTACK [None]
  - URTICARIA [None]
  - UTERINE DISORDER [None]
  - VERTIGO [None]
